FAERS Safety Report 21532808 (Version 1)
Quarter: 2022Q4

REPORT INFORMATION
  Report Type: Spontaneous
  Country: FR (occurrence: DE)
  Receive Date: 20221101
  Receipt Date: 20221101
  Transmission Date: 20230112
  Serious: Yes (Death, Other)
  Sender: FDA-Public Use
  Company Number: FR-SUN PHARMACEUTICAL INDUSTRIES LTD-2022RR-361147

PATIENT
  Age: 52 Year
  Sex: Male

DRUGS (7)
  1. CAPECITABINE [Suspect]
     Active Substance: CAPECITABINE
     Indication: Carcinoid tumour pulmonary
     Dosage: UNK
     Route: 065
     Dates: start: 201206, end: 201501
  2. CAPECITABINE [Suspect]
     Active Substance: CAPECITABINE
     Dosage: UNK
     Route: 065
     Dates: start: 201612, end: 201702
  3. CAPECITABINE [Suspect]
     Active Substance: CAPECITABINE
     Dosage: UNK
     Route: 065
     Dates: start: 201805
  4. TEMOZOLOMIDE [Suspect]
     Active Substance: TEMOZOLOMIDE
     Indication: Carcinoid tumour pulmonary
     Dosage: UNK
     Route: 065
     Dates: start: 201206, end: 201501
  5. TEMOZOLOMIDE [Suspect]
     Active Substance: TEMOZOLOMIDE
     Dosage: UNK
     Route: 065
     Dates: start: 201612, end: 201702
  6. EVEROLIMUS [Suspect]
     Active Substance: EVEROLIMUS
     Indication: Carcinoid tumour pulmonary
     Dosage: UNK
     Route: 065
     Dates: end: 201801
  7. BEVACIZUMAB [Suspect]
     Active Substance: BEVACIZUMAB
     Indication: Carcinoid tumour pulmonary
     Dosage: UNK
     Route: 065

REACTIONS (2)
  - Disease progression [Fatal]
  - Drug resistance [Unknown]
